FAERS Safety Report 16214696 (Version 2)
Quarter: 2020Q2

REPORT INFORMATION
  Report Type: Spontaneous
  Country: US (occurrence: US)
  Receive Date: 20190418
  Receipt Date: 20200403
  Transmission Date: 20200713
  Serious: Yes (Other)
  Sender: FDA-Public Use
  Company Number: US-GILEAD-2019-0402839

PATIENT
  Age: 42 Year
  Sex: Male

DRUGS (17)
  1. TRUVADA [Suspect]
     Active Substance: EMTRICITABINE\TENOFOVIR DISOPROXIL FUMARATE
     Indication: HIV INFECTION
     Dosage: UNK
     Route: 048
     Dates: start: 201306, end: 20181109
  2. NAPROSYN [Concomitant]
     Active Substance: NAPROXEN
  3. AZITHROMYCIN ANHYDROUS. [Concomitant]
     Active Substance: AZITHROMYCIN ANHYDROUS
  4. PREZISTA [Concomitant]
     Active Substance: DARUNAVIR ETHANOLATE
  5. LISINOPRIL. [Concomitant]
     Active Substance: LISINOPRIL
  6. VIAGRA [Concomitant]
     Active Substance: SILDENAFIL CITRATE
  7. ISENTRESS [Concomitant]
     Active Substance: RALTEGRAVIR POTASSIUM
  8. VIREAD [Suspect]
     Active Substance: TENOFOVIR DISOPROXIL FUMARATE
     Indication: HIV INFECTION
     Dosage: UNK
     Route: 048
     Dates: start: 201109, end: 201306
  9. NORVIR [Concomitant]
     Active Substance: RITONAVIR
  10. SELZENTRY [Concomitant]
     Active Substance: MARAVIROC
  11. DOXYCYCLINE. [Concomitant]
     Active Substance: DOXYCYCLINE
  12. LEVAQUIN [Concomitant]
     Active Substance: LEVOFLOXACIN
  13. EPZICOM [Concomitant]
     Active Substance: ABACAVIR SULFATE\LAMIVUDINE
  14. NICOTINE. [Concomitant]
     Active Substance: NICOTINE
  15. INDOMETHACIN AGILA [Concomitant]
     Active Substance: INDOMETHACIN SODIUM
  16. TIVICAY [Concomitant]
     Active Substance: DOLUTEGRAVIR SODIUM
  17. KELFEX [CEFADROXIL] [Concomitant]
     Active Substance: CEFADROXIL

REACTIONS (8)
  - Renal failure [Unknown]
  - Pain [Unknown]
  - Anhedonia [Unknown]
  - Emotional distress [Unknown]
  - Chronic kidney disease [Not Recovered/Not Resolved]
  - Hypoaesthesia [Recovered/Resolved]
  - Economic problem [Unknown]
  - Anxiety [Unknown]

NARRATIVE: CASE EVENT DATE: 2014
